FAERS Safety Report 12783685 (Version 1)
Quarter: 2016Q3

REPORT INFORMATION
  Report Type: Spontaneous
  Country: US (occurrence: US)
  Receive Date: 20160927
  Receipt Date: 20160927
  Transmission Date: 20161109
  Serious: No
  Sender: FDA-Public Use
  Company Number: None

PATIENT
  Age: 52 Year
  Sex: Female

DRUGS (1)
  1. LISTERINE HEALTHY WHITE ANTICAVITY FLUORIDE GENTLE CLEAN MINT [Suspect]
     Active Substance: SODIUM FLUORIDE

REACTIONS (5)
  - Hypersensitivity [None]
  - Product label issue [None]
  - Oral discomfort [None]
  - Product formulation issue [None]
  - Documented hypersensitivity to administered product [None]

NARRATIVE: CASE EVENT DATE: 20160913
